FAERS Safety Report 4759236-2 (Version None)
Quarter: 2005Q3

REPORT INFORMATION
  Report Type: 
  Country: None (occurrence: None)
  Receive Date: 20050831
  Receipt Date: 20050818
  Transmission Date: 20060218
  Serious: Yes (Other)
  Sender: FDA-Public Use
  Company Number: WAES 0508USA00916

PATIENT
  Age: 49 Year
  Sex: Male

DRUGS (5)
  1. COZAAR [Suspect]
     Indication: HYPERTENSION
     Dosage: 50 MG/DAILY PO
     Route: 048
     Dates: start: 20010110
  2. CAP LIPANTIL (FENOFIBRATE) [Suspect]
     Indication: HYPERLIPIDAEMIA
     Dosage: 150 MG/BID PO
     Route: 048
     Dates: start: 20041018, end: 20050516
  3. ATENOLOL MSD [Concomitant]
  4. CARDENALIN [Concomitant]
  5. ZOCOR [Concomitant]

REACTIONS (2)
  - RETINAL HAEMORRHAGE [None]
  - RHABDOMYOLYSIS [None]
